FAERS Safety Report 4311658-X (Version None)
Quarter: 2004Q1

REPORT INFORMATION
  Report Type: 
  Country: None (occurrence: None)
  Receive Date: 20040302
  Receipt Date: 20031111
  Transmission Date: 20041129
  Serious: No
  Sender: FDA-Public Use
  Company Number: 200328373BWH

PATIENT
  Age: 52 Year
  Sex: Male

DRUGS (8)
  1. LEVITRA [Suspect]
     Indication: ERECTILE DYSFUNCTION
     Dosage: 10 MG ONCE ORAL
     Route: 048
     Dates: start: 20031101
  2. PROCARDIA XL [Concomitant]
  3. ACCUPRIL [Concomitant]
  4. TENORMIN [Concomitant]
  5. DYAZIDE [Concomitant]
  6. LIPITOR [Concomitant]
  7. ASPIRIN [Concomitant]
  8. VIAGRA [Concomitant]

REACTIONS (1)
  - ERECTILE DYSFUNCTION [None]
